FAERS Safety Report 4530016-6 (Version None)
Quarter: 2004Q4

REPORT INFORMATION
  Report Type: 
  Country: None (occurrence: None)
  Receive Date: 20041217
  Receipt Date: 20041207
  Transmission Date: 20050328
  Serious: Yes (Hospitalization)
  Sender: FDA-Public Use
  Company Number: US-JNJFOC-20041201660

PATIENT
  Age: 70 Year
  Sex: Male

DRUGS (5)
  1. NATRECOR [Suspect]
     Route: 042
  2. NATRECOR [Suspect]
     Route: 042
  3. LASIX [Concomitant]
  4. ALBUTEROL [Concomitant]
  5. ATROVENT [Concomitant]

REACTIONS (2)
  - HYPOTENSION [None]
  - MYOCARDIAL INFARCTION [None]
